FAERS Safety Report 7107369-8 (Version None)
Quarter: 2010Q4

REPORT INFORMATION
  Report Type: 
  Country: None (occurrence: None)
  Receive Date: 20101111
  Receipt Date: 20101111
  Transmission Date: 20110411
  Serious: Yes (Hospitalization)
  Sender: FDA-Public Use
  Company Number: None

PATIENT
  Age: 28 Year
  Sex: Male
  Weight: 94 kg

DRUGS (1)
  1. OXYCODONE [Suspect]
     Indication: PAIN
     Dosage: 10 MG TID PO
     Route: 048
     Dates: start: 20081208, end: 20101109

REACTIONS (3)
  - FOAMING AT MOUTH [None]
  - OVERDOSE [None]
  - UNRESPONSIVE TO STIMULI [None]
